FAERS Safety Report 10208250 (Version 1)
Quarter: 2014Q2

REPORT INFORMATION
  Report Type: Spontaneous
  Country: US (occurrence: US)
  Receive Date: 20140530
  Receipt Date: 20140530
  Transmission Date: 20141212
  Serious: Yes (Other)
  Sender: FDA-Public Use
  Company Number: US-NAPPMUNDI-USA-2014-0112593

PATIENT
  Sex: Male

DRUGS (3)
  1. MORPHINE SULFATE (SIMILAR TO NDA 19-516) [Suspect]
     Indication: DRUG ABUSE
  2. OXYCONTIN (NDA 22-272) [Suspect]
     Indication: DRUG ABUSE
  3. OXYCONTIN (NDA 22-272) [Suspect]
     Route: 055

REACTIONS (2)
  - Drug abuse [Unknown]
  - Malaise [Unknown]
